FAERS Safety Report 6527640-8 (Version None)
Quarter: 2010Q1

REPORT INFORMATION
  Report Type: 
  Country: None (occurrence: None)
  Receive Date: 20100105
  Receipt Date: 20091228
  Transmission Date: 20100710
  Serious: Yes (Other)
  Sender: FDA-Public Use
  Company Number: BE-ABBOTT-09P-013-0599404-00

PATIENT
  Sex: Female

DRUGS (19)
  1. HUMIRA [Suspect]
     Indication: RHEUMATOID ARTHRITIS
     Route: 058
     Dates: start: 20080728, end: 20081024
  2. HUMIRA [Suspect]
     Indication: PSORIATIC ARTHROPATHY
  3. ENBREL [Suspect]
     Indication: DRUG USE FOR UNKNOWN INDICATION
     Route: 058
     Dates: start: 20030201, end: 20080501
  4. FELDENE [Concomitant]
     Indication: ARTHRITIS
     Dosage: UP TO 1 PER DAY TEMPORARILY AND SHORT USE)
  5. FELDENE [Concomitant]
     Indication: ARTHRALGIA
  6. TRIAMCINOLONE [Concomitant]
     Indication: RHEUMATOID ARTHRITIS
  7. TRIAMCINOLONE [Concomitant]
     Indication: PSORIATIC ARTHROPATHY
     Dosage: 1 E.C. GELL/DAY
     Dates: end: 20090106
  8. TRIAMCINOLONE [Concomitant]
     Dosage: 1 E.C. GELL/DAY
     Dates: start: 20090106
  9. TRIAMCINOLONE [Concomitant]
     Dosage: 1 E.C. GELL/DAY
     Dates: start: 20090101, end: 20090319
  10. TRIAMCINOLONE [Concomitant]
     Dosage: 1 E.C. GELL/DAY
     Dates: start: 20090319
  11. SULAR [Concomitant]
     Indication: DRUG USE FOR UNKNOWN INDICATION
  12. SANDOZ CA-D [Concomitant]
     Indication: DRUG USE FOR UNKNOWN INDICATION
     Dosage: 600/400
  13. DAFALGAN FORTE 100 [Concomitant]
     Indication: DRUG USE FOR UNKNOWN INDICATION
     Dosage: 1 OR 2 TABLETS PER DAY
  14. PIROXICAM [Concomitant]
     Indication: DRUG USE FOR UNKNOWN INDICATION
     Dosage: FORM STRENGTH 20 MG VERY OCCASIONALLY 1/DAY
  15. DAFALGAN FORTE 1000 [Concomitant]
     Indication: DRUG USE FOR UNKNOWN INDICATION
     Dosage: MAX 3X1/DAY
     Dates: end: 20090106
  16. BIOFENAC 100 [Concomitant]
     Indication: DRUG USE FOR UNKNOWN INDICATION
     Dates: start: 20090106, end: 20090319
  17. BIOFENAC 100 [Concomitant]
     Dosage: APPROXIMATELY 2 TABLETS PER WEEK AS NEEDED
     Dates: start: 20090319
  18. ARAVA [Concomitant]
     Indication: DRUG USE FOR UNKNOWN INDICATION
  19. PUVA [Concomitant]
     Indication: PSORIASIS
     Dates: start: 20090106

REACTIONS (3)
  - AUTOIMMUNE HEPATITIS [None]
  - POLYARTHRITIS [None]
  - PSORIASIS [None]
